FAERS Safety Report 10430336 (Version 1)
Quarter: 2014Q3

REPORT INFORMATION
  Report Type: Spontaneous
  Country: CA (occurrence: None)
  Receive Date: 20140902
  Receipt Date: 20140902
  Transmission Date: 20150326
  Serious: Yes (Other)
  Sender: FDA-Public Use
  Company Number: BD-2014-0042

PATIENT
  Age: 62 Year

DRUGS (6)
  1. ONDANSETRON (ONDANSETRON) UNKNOWN [Suspect]
     Active Substance: ONDANSETRON
     Indication: VOMITING
  2. FLUOROURACIL. [Concomitant]
     Active Substance: FLUOROURACIL
  3. DOXORUBICIN [Concomitant]
     Active Substance: DOXORUBICIN
  4. DEXAMETHASONE. [Concomitant]
     Active Substance: DEXAMETHASONE
  5. DIPHENHYDRAMINE [Suspect]
     Active Substance: DIPHENHYDRAMINE
     Indication: PRODUCT USED FOR UNKNOWN INDICATION
  6. ONDANSETRON (ONDANSETRON) UNKNOWN [Suspect]
     Active Substance: ONDANSETRON
     Indication: NAUSEA

REACTIONS (1)
  - Ventricular arrhythmia [None]
